FAERS Safety Report 25182923 (Version 1)
Quarter: 2025Q2

REPORT INFORMATION
  Report Type: Spontaneous
  Country: US (occurrence: US)
  Receive Date: 20250410
  Receipt Date: 20250410
  Transmission Date: 20250716
  Serious: No
  Sender: AMGEN
  Company Number: US-AMGEN-USASP2025066146

PATIENT
  Age: 31 Year
  Sex: Male

DRUGS (2)
  1. PREDNISONE [Suspect]
     Active Substance: PREDNISONE
     Indication: Alanine aminotransferase increased
     Dosage: 60 MILLIGRAM, QD (8 WEEKS) (STARTING ON DAY 1)
     Route: 048
  2. PREDNISONE [Suspect]
     Active Substance: PREDNISONE
     Indication: Prophylaxis

REACTIONS (5)
  - Blood triglycerides increased [Unknown]
  - Cortisol abnormal [Unknown]
  - Adverse event [Unknown]
  - Off label use [Unknown]
  - Hepatic enzyme increased [Recovered/Resolved]
